FAERS Safety Report 7063998 (Version 8)
Quarter: 2016Q1

REPORT INFORMATION
  Report Type: Spontaneous
  Country: US (occurrence: US)
  Receive Date: 20090727
  Receipt Date: 20160105
  Transmission Date: 20160526
  Serious: Yes (Hospitalization, Disabling)
  Sender: FDA-Public Use
  Company Number: US-BAYER-200927549NA

PATIENT
  Age: 23 Year
  Sex: Female
  Weight: 52.15 kg

DRUGS (22)
  1. ALEVE [Concomitant]
     Active Substance: NAPROXEN SODIUM
     Indication: DYSMENORRHOEA
  2. FOLIC ACID. [Concomitant]
     Active Substance: FOLIC ACID
  3. PEPCID [Concomitant]
     Active Substance: FAMOTIDINE
  4. TAZORAC [Concomitant]
     Active Substance: TAZAROTENE
     Indication: ACNE
     Dates: start: 2000
  5. ADVIL [Concomitant]
     Active Substance: IBUPROFEN
     Indication: DYSMENORRHOEA
  6. AMPICILLIN [Concomitant]
     Active Substance: AMPICILLIN
     Indication: ACNE
     Dates: start: 200701
  7. DOXYCYCLINE. [Concomitant]
     Active Substance: DOXYCYCLINE
     Indication: ACNE
     Dosage: 200 MG (DAILY DOSE), BID,
     Route: 048
  8. ADVIL [Concomitant]
     Active Substance: IBUPROFEN
     Indication: HEADACHE
  9. FISH OIL [Concomitant]
     Active Substance: FISH OIL
  10. DICYCLOMINE [Concomitant]
     Active Substance: DICYCLOMINE HYDROCHLORIDE
     Dosage: UNK
     Dates: start: 20070731
  11. DURAGEL [Concomitant]
     Indication: ACNE
     Dates: start: 2000
  12. RETIN-A [Concomitant]
     Active Substance: TRETINOIN
     Indication: ACNE
     Dates: start: 200701
  13. ULTRAM [Concomitant]
     Active Substance: TRAMADOL HYDROCHLORIDE
  14. TRIAZ [Concomitant]
     Active Substance: BENZOYL PEROXIDE
     Indication: ACNE
     Dates: start: 200701
  15. ASCORBIC ACID. [Concomitant]
     Active Substance: ASCORBIC ACID
     Indication: FEELING COLD
  16. SENOKOT [Concomitant]
     Active Substance: SENNOSIDES
  17. YASMIN [Suspect]
     Active Substance: DROSPIRENONE\ETHINYL ESTRADIOL
     Indication: ACNE
     Dates: start: 200701, end: 20070731
  18. ALEVE [Concomitant]
     Active Substance: NAPROXEN SODIUM
     Indication: HEADACHE
  19. ARNICA [Concomitant]
     Active Substance: ARNICA MONTANA FLOWER
  20. IBUPROFEN. [Concomitant]
     Active Substance: IBUPROFEN
  21. AMBIEN [Concomitant]
     Active Substance: ZOLPIDEM TARTRATE
  22. COLACE [Concomitant]
     Active Substance: DOCUSATE SODIUM

REACTIONS (21)
  - Headache [None]
  - Vomiting [None]
  - Cognitive disorder [None]
  - Gait disturbance [None]
  - Dyspraxia [None]
  - Pain [None]
  - Dysarthria [None]
  - Motor dysfunction [None]
  - Activities of daily living impaired [None]
  - Asthenia [None]
  - Abasia [None]
  - Emotional disorder [None]
  - Sensory disturbance [None]
  - Gait spastic [None]
  - Communication disorder [None]
  - Mental impairment [None]
  - Hemiplegia [None]
  - Injury [None]
  - Clumsiness [None]
  - Cerebrovascular accident [None]
  - Aphasia [None]

NARRATIVE: CASE EVENT DATE: 20070731
